FAERS Safety Report 7643765-8 (Version None)
Quarter: 2011Q3

REPORT INFORMATION
  Report Type: 
  Country: None (occurrence: None)
  Receive Date: 20110729
  Receipt Date: 20110721
  Transmission Date: 20111222
  Serious: Yes (Other)
  Sender: FDA-Public Use
  Company Number: US-US-EMD SERONO, INC.-7071121

PATIENT
  Sex: Female

DRUGS (3)
  1. KEPPRA [Concomitant]
     Indication: CONVULSION
  2. DILANTIN [Concomitant]
     Indication: CONVULSION
  3. REBIF [Suspect]
     Indication: MULTIPLE SCLEROSIS
     Route: 058
     Dates: start: 20110202

REACTIONS (7)
  - BLADDER DISORDER [None]
  - URINARY INCONTINENCE [None]
  - CONVULSION [None]
  - DIPLOPIA [None]
  - MALAISE [None]
  - MUSCLE SPASMS [None]
  - ANTICONVULSANT DRUG LEVEL BELOW THERAPEUTIC [None]
